FAERS Safety Report 22035500 (Version 2)
Quarter: 2023Q1

REPORT INFORMATION
  Report Type: Spontaneous
  Country: JP (occurrence: None)
  Receive Date: 20230224
  Receipt Date: 20230331
  Transmission Date: 20230418
  Serious: Yes (Other)
  Sender: FDA-Public Use
  Company Number: 2023A041985

PATIENT
  Age: 79 Year
  Sex: Male

DRUGS (4)
  1. LYNPARZA [Suspect]
     Active Substance: OLAPARIB
     Indication: Breast cancer male
     Route: 048
     Dates: end: 20230116
  2. LYNPARZA [Suspect]
     Active Substance: OLAPARIB
     Indication: Breast cancer male
     Route: 048
     Dates: start: 20221124, end: 20230124
  3. LYNPARZA [Suspect]
     Active Substance: OLAPARIB
     Indication: Breast cancer male
     Dosage: DOSE UNKNOWN
     Route: 048
     Dates: end: 2023
  4. OLMESARTAN [Concomitant]
     Active Substance: OLMESARTAN
     Indication: Hypertension
     Dosage: DOSE UNKNOWN

REACTIONS (1)
  - Renal impairment [Recovered/Resolved]

NARRATIVE: CASE EVENT DATE: 20230116
